FAERS Safety Report 7658339-2 (Version None)
Quarter: 2011Q3

REPORT INFORMATION
  Report Type: 
  Country: None (occurrence: None)
  Receive Date: 20110805
  Receipt Date: 20110802
  Transmission Date: 20111222
  Serious: Yes (Death, Hospitalization, Other)
  Sender: FDA-Public Use
  Company Number: US-AMGEN-USASP2011037109

PATIENT
  Age: 51 Year
  Sex: Female

DRUGS (21)
  1. DECADRON [Concomitant]
  2. AMBIEN [Concomitant]
  3. PLATELETS [Concomitant]
  4. VACCINES [Concomitant]
  5. DACOGEN [Concomitant]
  6. ZOVIRAX                            /00587301/ [Concomitant]
  7. CORTICOSTEROIDS [Concomitant]
  8. AVASTIN [Concomitant]
  9. TYLENOL (CAPLET) [Concomitant]
  10. RED BLOOD CELLS [Concomitant]
  11. NPLATE [Suspect]
     Indication: IDIOPATHIC THROMBOCYTOPENIC PURPURA
     Dosage: 4 A?G/KG, UNK
     Route: 058
     Dates: start: 20110113, end: 20110331
  12. RITUXIMAB [Concomitant]
  13. ATIVAN [Concomitant]
  14. ZOMETA [Concomitant]
  15. KYTRIL [Concomitant]
  16. NEUPOGEN [Concomitant]
     Dosage: 480 A?G, UNK
     Route: 058
  17. ALOXI [Concomitant]
  18. HERCEPTIN [Concomitant]
  19. PREDNISONE [Concomitant]
  20. BENADRYL [Concomitant]
  21. COMPAZINE [Concomitant]

REACTIONS (26)
  - RHEUMATOID ARTHRITIS [None]
  - CARDIAC MURMUR FUNCTIONAL [None]
  - BREAST CANCER METASTATIC [None]
  - BACTERIAL SEPSIS [None]
  - THROMBOCYTOPENIA [None]
  - DYSPNOEA [None]
  - ASTHENIA [None]
  - PALPITATIONS [None]
  - WEIGHT DECREASED [None]
  - ACUTE MYELOID LEUKAEMIA [None]
  - ANAEMIA [None]
  - BLAST CELLS [None]
  - HYPONATRAEMIA [None]
  - LEUKOCYTOSIS [None]
  - DECREASED APPETITE [None]
  - ORAL HERPES [None]
  - TACHYCARDIA [None]
  - PANCYTOPENIA [None]
  - NAUSEA [None]
  - DRUG INEFFECTIVE [None]
  - MUSCULOSKELETAL PAIN [None]
  - DEPRESSION [None]
  - PALLOR [None]
  - DIZZINESS [None]
  - MYELODYSPLASTIC SYNDROME TRANSFORMATION [None]
  - CACHEXIA [None]
